FAERS Safety Report 8385454-0 (Version None)
Quarter: 2012Q2

REPORT INFORMATION
  Report Type: 
  Country: None (occurrence: None)
  Receive Date: 20120525
  Receipt Date: 20120516
  Transmission Date: 20120825
  Serious: No
  Sender: FDA-Public Use
  Company Number: US-BIOGENIDEC-2012BI017820

PATIENT
  Sex: Female

DRUGS (1)
  1. TYSABRI [Suspect]
     Indication: MULTIPLE SCLEROSIS
     Route: 042
     Dates: start: 20100609, end: 20110321

REACTIONS (10)
  - BLOOD GLUCOSE DECREASED [None]
  - ABDOMINAL PAIN UPPER [None]
  - GINGIVAL INFECTION [None]
  - AMMONIA [None]
  - GAIT DISTURBANCE [None]
  - VOMITING [None]
  - OESOPHAGEAL IRRITATION [None]
  - AMNESIA [None]
  - JOINT SWELLING [None]
  - DECREASED APPETITE [None]
